FAERS Safety Report 14558705 (Version 1)
Quarter: 2018Q1

REPORT INFORMATION
  Report Type: Spontaneous
  Country: US (occurrence: US)
  Receive Date: 20180221
  Receipt Date: 20180221
  Transmission Date: 20180509
  Serious: No
  Sender: FDA-Public Use
  Company Number: US-BAYER-2018-033893

PATIENT
  Age: 67 Year
  Sex: Female
  Weight: 103.99 kg

DRUGS (4)
  1. CLARITIN [Suspect]
     Active Substance: LORATADINE
     Indication: HYPERSENSITIVITY
     Dosage: UNK
     Route: 048
     Dates: start: 201702, end: 201703
  2. CLARITIN [Suspect]
     Active Substance: LORATADINE
     Indication: NASOPHARYNGITIS
  3. CLARITIN [Suspect]
     Active Substance: LORATADINE
     Indication: HYPERSENSITIVITY
     Dosage: 1 DF, QD
     Route: 048
     Dates: start: 20180218
  4. CLARITIN [Suspect]
     Active Substance: LORATADINE
     Indication: NASOPHARYNGITIS

REACTIONS (7)
  - Somnolence [Unknown]
  - Pre-existing condition improved [Unknown]
  - Product prescribing issue [Unknown]
  - Therapeutic product effective for unapproved indication [Unknown]
  - Pre-existing condition improved [Unknown]
  - Asthenia [None]
  - Therapeutic product effective for unapproved indication [None]

NARRATIVE: CASE EVENT DATE: 201702
